FAERS Safety Report 4315816-X (Version None)
Quarter: 2004Q1

REPORT INFORMATION
  Report Type: 
  Country: None (occurrence: None)
  Receive Date: 20040310
  Receipt Date: 20040303
  Transmission Date: 20041129
  Serious: Yes (Hospitalization)
  Sender: FDA-Public Use
  Company Number: US-JNJFOC-20040301105

PATIENT
  Age: 85 Year
  Sex: Male
  Weight: 87.0906 kg

DRUGS (8)
  1. ULTRACET [Suspect]
     Dosage: ORAL
     Route: 048
  2. AMERIL (CETIRIZINE HYDROCHLORIDE) [Concomitant]
  3. PROTONIX [Concomitant]
  4. PERSANTINE [Concomitant]
  5. CENTROID (CENTRUM) [Concomitant]
  6. DEMODEX (TORASEMIDE) [Concomitant]
  7. LENOXIN (DIGOXIN) [Concomitant]
  8. TYLENOL [Concomitant]

REACTIONS (2)
  - IMPAIRED HEALING [None]
  - TOE AMPUTATION [None]
